FAERS Safety Report 9943157 (Version 2)
Quarter: 2014Q2

REPORT INFORMATION
  Report Type: Spontaneous
  Country: US (occurrence: US)
  Receive Date: 20140303
  Receipt Date: 20140512
  Transmission Date: 20141212
  Serious: Yes (Hospitalization)
  Sender: FDA-Public Use
  Company Number: US-GLAXOSMITHKLINE-A1062355A

PATIENT
  Age: 71 Year
  Sex: Male

DRUGS (5)
  1. LOVAZA [Suspect]
     Indication: PROPHYLAXIS
     Dosage: 2CAPL TWICE PER DAY
     Route: 048
     Dates: start: 1999
  2. INSULIN [Concomitant]
  3. CRESTOR [Concomitant]
  4. DIOVAN [Concomitant]
  5. TRICOR [Concomitant]

REACTIONS (6)
  - Blindness [Not Recovered/Not Resolved]
  - Angioplasty [Not Recovered/Not Resolved]
  - Epistaxis [Unknown]
  - Limb injury [Unknown]
  - Muscular weakness [Not Recovered/Not Resolved]
  - Product quality issue [Unknown]
